FAERS Safety Report 6139122-6 (Version None)
Quarter: 2009Q2

REPORT INFORMATION
  Report Type: 
  Country: None (occurrence: None)
  Receive Date: 20090401
  Receipt Date: 20090320
  Transmission Date: 20091009
  Serious: Yes (Other)
  Sender: FDA-Public Use
  Company Number: CA-JNJFOC-20090306015

PATIENT
  Sex: Female
  Weight: 61 kg

DRUGS (4)
  1. REMICADE [Suspect]
     Route: 042
  2. REMICADE [Suspect]
     Indication: PYODERMA GANGRENOSUM
     Dosage: 100 MG VIAL
     Route: 042
  3. DEMEROL [Concomitant]
  4. VITAMIN B-12 [Concomitant]
     Dosage: 1 TABLET DAILY

REACTIONS (1)
  - PARAESTHESIA [None]
